FAERS Safety Report 5931962-9 (Version None)
Quarter: 2008Q4

REPORT INFORMATION
  Report Type: 
  Country: None (occurrence: None)
  Receive Date: 20081027
  Receipt Date: 20081021
  Transmission Date: 20090506
  Serious: Yes (Other)
  Sender: FDA-Public Use
  Company Number: PHBS2008OM06099

PATIENT
  Age: 16 Year
  Sex: Male
  Weight: 41 kg

DRUGS (7)
  1. CARBAMAZEPINE [Suspect]
     Indication: CONVULSION
  2. MIDAZOLAM HCL [Interacting]
     Dosage: 5 MG, UNK
  3. FENTANYL [Interacting]
     Dosage: 50 UG, UNK
     Route: 042
  4. THIOPENTAL SODIUM [Interacting]
     Dosage: 150 MG, UNK
  5. SEVOFLURANE [Interacting]
  6. SODIUM BENZOATE [Concomitant]
     Indication: ARGINASE INCREASED
  7. PHENYLBUTAZONE SODIUM [Concomitant]
     Indication: ARGINASE INCREASED

REACTIONS (5)
  - APNOEA [None]
  - DRUG INTERACTION [None]
  - ENZYME INDUCTION [None]
  - RESPIRATORY ARREST [None]
  - TENOTOMY [None]
